FAERS Safety Report 6800788-6 (Version None)
Quarter: 2010Q2

REPORT INFORMATION
  Report Type: 
  Country: None (occurrence: None)
  Receive Date: 20100629
  Receipt Date: 20100614
  Transmission Date: 20101027
  Serious: Yes (Hospitalization)
  Sender: FDA-Public Use
  Company Number: GB-ELI_LILLY_AND_COMPANY-GB201006004180

PATIENT
  Age: 78 Year
  Sex: Female
  Weight: 81 kg

DRUGS (5)
  1. PRASUGREL HYDROCHLORIDE [Suspect]
     Indication: ARTERIOSCLEROSIS CORONARY ARTERY
     Dosage: 5 MG, UNKNOWN
     Dates: start: 20100506, end: 20100511
  2. MIDODRINE HYDROCHLORIDE [Concomitant]
     Indication: ORTHOSTATIC HYPOTENSION
     Dosage: 5 MG, UNKNOWN
     Route: 048
     Dates: start: 20100509, end: 20100511
  3. LANSOPRAZOLE [Concomitant]
     Dosage: UNK, UNKNOWN
     Route: 065
  4. SIMVASTATIN [Concomitant]
     Dosage: UNK, UNKNOWN
     Route: 065
  5. LEVOTHYROXINE SODIUM [Concomitant]
     Dosage: UNK, UNKNOWN
     Route: 065

REACTIONS (3)
  - CONTUSION [None]
  - HEADACHE [None]
  - NERVE INJURY [None]
